FAERS Safety Report 4929284-8 (Version None)
Quarter: 2006Q1

REPORT INFORMATION
  Report Type: 
  Country: None (occurrence: None)
  Receive Date: 20060301
  Receipt Date: 20060215
  Transmission Date: 20060701
  Serious: Yes (Hospitalization)
  Sender: FDA-Public Use
  Company Number: US-KINGPHARMUSA00001-K200600225

PATIENT
  Age: 57 Year
  Sex: Female
  Weight: 102 kg

DRUGS (9)
  1. LEVOXYL [Suspect]
     Indication: HYPOTHYROIDISM
     Dosage: 31.25 MCG (1/4 OF 125MCG), QD
     Route: 048
     Dates: start: 19960101, end: 19960101
  2. LEVOXYL [Suspect]
     Dosage: 12.5 MCG, (1/4 OF 50 MCG)
     Route: 048
     Dates: start: 19960101, end: 19960101
  3. LEVOXYL [Suspect]
     Dosage: 25 MCG, (1/2 OF 50MCG)
     Route: 048
     Dates: start: 19960101
  4. LEVOXYL [Suspect]
     Dosage: 100 MCG,(2 TABLETS OF 50 MCG) QD
     Route: 048
     Dates: start: 20030101, end: 20050101
  5. LEVOXYL [Suspect]
     Dosage: 12.5 MCG, (1/4 OF 50 MCG)
     Route: 048
     Dates: start: 20050101, end: 20060124
  6. LEVOXYL [Suspect]
     Dosage: 37.5 MCG, (3/4 OF 50MCG)
     Route: 048
     Dates: start: 20060126, end: 20060214
  7. BEROCCA C [Suspect]
     Indication: NERVOUS SYSTEM DISORDER
     Dosage: 1 TABLET, QD
     Route: 048
     Dates: end: 20060211
  8. MULTIVITAMIN ^LAPPE^ [Concomitant]
     Indication: VITAMIN SUPPLEMENTATION
     Dosage: 1 TABLET, QD
     Route: 048
     Dates: end: 20050101
  9. THERAGRAN-M [Concomitant]
     Dosage: 1 TABLET, SINGLE
     Route: 048
     Dates: start: 20060101, end: 20060101

REACTIONS (24)
  - ADRENAL DISORDER [None]
  - AGEUSIA [None]
  - AGITATION [None]
  - BREAST MICROCALCIFICATION [None]
  - COUGH [None]
  - DISTURBANCE IN ATTENTION [None]
  - DRUG HYPERSENSITIVITY [None]
  - DRUG INEFFECTIVE [None]
  - DYSPNOEA [None]
  - ELECTROCARDIOGRAM T WAVE INVERSION [None]
  - FATIGUE [None]
  - FEELING ABNORMAL [None]
  - FUNGAL INFECTION [None]
  - HALLUCINATION, OLFACTORY [None]
  - JOINT SWELLING [None]
  - MUSCLE ATROPHY [None]
  - NIGHTMARE [None]
  - OEDEMA PERIPHERAL [None]
  - STAPHYLOCOCCAL INFECTION [None]
  - TEMPERATURE INTOLERANCE [None]
  - TOOTH DISORDER [None]
  - URTICARIA [None]
  - VISION BLURRED [None]
  - WEIGHT INCREASED [None]
